FAERS Safety Report 21958240 (Version 2)
Quarter: 2023Q1

REPORT INFORMATION
  Report Type: Spontaneous
  Country: JP (occurrence: JP)
  Receive Date: 20230206
  Receipt Date: 20230228
  Transmission Date: 20230417
  Serious: Yes (Hospitalization)
  Sender: FDA-Public Use
  Company Number: JP-CHUGAI-2023003516

PATIENT
  Age: 89 Year
  Sex: Male

DRUGS (2)
  1. TECENTRIQ [Suspect]
     Active Substance: ATEZOLIZUMAB
     Indication: Hepatocellular carcinoma
     Dosage: 1200 MILLIGRAM
     Route: 041
     Dates: start: 20220906, end: 20221112
  2. AVASTIN [Suspect]
     Active Substance: BEVACIZUMAB
     Indication: Hepatocellular carcinoma
     Dosage: 15 MILLIGRAM/KILOGRAM
     Route: 041
     Dates: start: 20220906, end: 20221112

REACTIONS (1)
  - Interstitial lung disease [Not Recovered/Not Resolved]

NARRATIVE: CASE EVENT DATE: 20230110
